FAERS Safety Report 23912853 (Version 1)
Quarter: 2024Q2

REPORT INFORMATION
  Report Type: Spontaneous
  Country: CA (occurrence: CA)
  Receive Date: 20240529
  Receipt Date: 20240529
  Transmission Date: 20240716
  Serious: Yes (Other)
  Sender: FDA-Public Use
  Company Number: CA-AUROBINDO-AUR-APL-2024-025321

PATIENT
  Age: 41 Year
  Sex: Female

DRUGS (22)
  1. METHOTREXATE [Suspect]
     Active Substance: METHOTREXATE
     Indication: Dermatitis papillaris capillitii
     Dosage: UNK
     Route: 065
  2. METHOTREXATE [Suspect]
     Active Substance: METHOTREXATE
     Indication: Dermatitis atopic
  3. BETAMETHASONE [Suspect]
     Active Substance: BETAMETHASONE\BETAMETHASONE DIPROPIONATE
     Indication: Dermatitis papillaris capillitii
     Dosage: UNK
     Route: 061
  4. BETAMETHASONE [Suspect]
     Active Substance: BETAMETHASONE\BETAMETHASONE DIPROPIONATE
     Indication: Dermatitis atopic
     Dosage: UNK
     Route: 065
  5. CLINDAMYCIN PHOSPHATE [Suspect]
     Active Substance: CLINDAMYCIN PHOSPHATE
     Indication: Dermatitis papillaris capillitii
     Dosage: UNK
     Route: 061
  6. CLINDAMYCIN PHOSPHATE [Suspect]
     Active Substance: CLINDAMYCIN PHOSPHATE
     Indication: Dermatitis atopic
     Dosage: UNK
     Route: 065
  7. CLOBETASOL [Suspect]
     Active Substance: CLOBETASOL
     Indication: Dermatitis papillaris capillitii
     Dosage: UNK
     Route: 061
  8. CLOBETASOL [Suspect]
     Active Substance: CLOBETASOL
     Indication: Dermatitis atopic
     Dosage: UNK
     Route: 065
  9. CLOBETASOL [Suspect]
     Active Substance: CLOBETASOL
     Indication: Dermatitis papillaris capillitii
     Dosage: UNK
     Route: 065
  10. CLOBETASOL [Suspect]
     Active Substance: CLOBETASOL
     Indication: Dermatitis atopic
  11. DOXYCYCLINE [Suspect]
     Active Substance: DOXYCYCLINE\DOXYCYCLINE HYCLATE
     Indication: Dermatitis papillaris capillitii
     Dosage: UNK
     Route: 065
  12. DOXYCYCLINE [Suspect]
     Active Substance: DOXYCYCLINE\DOXYCYCLINE HYCLATE
     Indication: Dermatitis atopic
  13. FUSIDIC ACID [Suspect]
     Active Substance: FUSIDIC ACID
     Indication: Dermatitis papillaris capillitii
     Dosage: UNK
     Route: 061
  14. FUSIDIC ACID [Suspect]
     Active Substance: FUSIDIC ACID
     Indication: Dermatitis atopic
     Dosage: UNK
     Route: 065
  15. MINOCYCLINE [Suspect]
     Active Substance: MINOCYCLINE HYDROCHLORIDE
     Indication: Dermatitis papillaris capillitii
     Dosage: UNK
     Route: 065
  16. MINOCYCLINE [Suspect]
     Active Substance: MINOCYCLINE HYDROCHLORIDE
     Indication: Dermatitis atopic
  17. SALICYLIC ACID [Suspect]
     Active Substance: SALICYLIC ACID
     Indication: Dermatitis papillaris capillitii
     Dosage: UNK
     Route: 061
  18. SALICYLIC ACID [Suspect]
     Active Substance: SALICYLIC ACID
     Indication: Dermatitis atopic
     Dosage: UNK
     Route: 065
  19. TRIAMCINOLONE [Suspect]
     Active Substance: TRIAMCINOLONE
     Indication: Dermatitis papillaris capillitii
     Dosage: UNK
     Route: 065
  20. TRIAMCINOLONE [Suspect]
     Active Substance: TRIAMCINOLONE
     Indication: Dermatitis atopic
     Dosage: UNK
     Route: 026
  21. DUPILUMAB [Concomitant]
     Active Substance: DUPILUMAB
     Indication: Dermatitis papillaris capillitii
     Dosage: UNK
     Route: 065
  22. DUPILUMAB [Concomitant]
     Active Substance: DUPILUMAB
     Indication: Dermatitis atopic

REACTIONS (1)
  - Treatment failure [Recovered/Resolved]
